FAERS Safety Report 17525811 (Version 3)
Quarter: 2020Q1

REPORT INFORMATION
  Report Type: Spontaneous
  Country: DE (occurrence: DE)
  Receive Date: 20200310
  Receipt Date: 20200323
  Transmission Date: 20200409
  Serious: Yes (Death, Other)
  Sender: FDA-Public Use
  Company Number: DE-PFIZER INC-2020097281

PATIENT
  Sex: Male

DRUGS (1)
  1. CYTOTEC [Suspect]
     Active Substance: MISOPROSTOL
     Indication: LABOUR INDUCTION
     Dosage: 25 UG AND 50 UG RESPECTIVELY
     Dates: start: 20191029, end: 20191030

REACTIONS (5)
  - Congenital brain damage [Fatal]
  - Foetal exposure during delivery [Unknown]
  - Neonatal asphyxia [Fatal]
  - Cerebrovascular accident [Fatal]
  - Perinatal stroke [Fatal]

NARRATIVE: CASE EVENT DATE: 20191029
